FAERS Safety Report 23880611 (Version 3)
Quarter: 2024Q4

REPORT INFORMATION
  Report Type: Spontaneous
  Country: US (occurrence: US)
  Receive Date: 20240521
  Receipt Date: 20241213
  Transmission Date: 20250115
  Serious: Yes (Hospitalization, Other)
  Sender: GLAXOSMITHKLINE
  Company Number: US-GLAXOSMITHKLINE-US2024AMR061972

PATIENT

DRUGS (24)
  1. LAMICTAL [Suspect]
     Active Substance: LAMOTRIGINE
     Indication: Depression
     Dosage: UNK
     Route: 048
     Dates: start: 20220507
  2. CETIRIZINE [Concomitant]
     Active Substance: CETIRIZINE HYDROCHLORIDE
     Indication: Product used for unknown indication
     Dosage: 10 MG, BID, TAKE 1 TABLET, 60 TABLET
     Route: 048
     Dates: start: 20220106
  3. FAMOTIDINE [Concomitant]
     Active Substance: FAMOTIDINE
     Indication: Product used for unknown indication
     Dosage: 20 MG, BID, TAKE 1 TABLET, 100 TABLET
     Route: 048
     Dates: start: 20220106
  4. FLONASE ALLERGY RELIEF [Concomitant]
     Active Substance: FLUTICASONE PROPIONATE
     Indication: Product used for unknown indication
     Dosage: 2 PUFF(S), IN EACH NOSTRIL, 50 MCG
     Dates: start: 20211124
  5. FLONASE ALLERGY RELIEF [Concomitant]
     Active Substance: FLUTICASONE PROPIONATE
     Dosage: 1 PUFF(S), QD,IN EACH NOSTRIL,  50 MCG
     Dates: start: 20211124
  6. MONTELUKAST [Concomitant]
     Active Substance: MONTELUKAST
     Indication: Product used for unknown indication
     Dosage: 1 DF, QD, 10 MG
     Route: 048
     Dates: start: 20210929
  7. FLUOXETINE [Concomitant]
     Active Substance: FLUOXETINE HYDROCHLORIDE
     Indication: Product used for unknown indication
     Dosage: 1 DF, QD, 100 CAPSULE
     Dates: start: 20210902
  8. ACETAMINOPHEN [Concomitant]
     Active Substance: ACETAMINOPHEN
     Indication: Product used for unknown indication
     Dosage: 1000 MG, QD
     Dates: start: 20220602
  9. DIPHENHYDRAMINE [Concomitant]
     Active Substance: DIPHENHYDRAMINE
     Indication: Product used for unknown indication
     Dosage: 50 MG, QD
     Route: 042
  10. ACYCLOVIR [Concomitant]
     Active Substance: ACYCLOVIR
     Indication: Product used for unknown indication
     Dosage: UNK, TID
     Route: 042
  11. BETAMETHASONE DIPROPIONATE [Concomitant]
     Active Substance: BETAMETHASONE DIPROPIONATE
     Indication: Product used for unknown indication
     Dosage: UNK, BID
     Route: 061
  12. CEFTRIAXONE [Concomitant]
     Active Substance: CEFTRIAXONE
     Indication: Product used for unknown indication
     Dosage: UNK UNK, QD
  13. CHLORHEXIDINE GLUCONATE [Concomitant]
     Active Substance: CHLORHEXIDINE GLUCONATE
     Indication: Product used for unknown indication
     Dosage: UNK, QD, 2%
     Route: 061
  14. CICLESONIDE [Concomitant]
     Active Substance: CICLESONIDE
     Indication: Product used for unknown indication
     Dosage: 160 UG, 1 PUFF
  15. MORPHINE [Concomitant]
     Active Substance: MORPHINE
     Indication: Product used for unknown indication
     Dosage: 2 MG
  16. TOBRADEX [Concomitant]
     Active Substance: DEXAMETHASONE\TOBRAMYCIN
     Indication: Product used for unknown indication
     Dosage: UNK
  17. CYCLOSPORINE [Concomitant]
     Active Substance: CYCLOSPORINE
     Indication: Product used for unknown indication
     Dosage: UNK
  18. MIDAZOLAM [Concomitant]
     Active Substance: MIDAZOLAM
     Indication: Product used for unknown indication
     Dosage: 2 MG, 1 MG/ML,  INJ 2ML
  19. ALFENTANIL [Concomitant]
     Active Substance: ALFENTANIL
     Indication: Product used for unknown indication
     Dosage: 1 MG, 0.5 MG/ML, INJ 2 ML
  20. LIDOCAINE [Concomitant]
     Active Substance: LIDOCAINE
     Indication: Product used for unknown indication
     Dosage: 100 MG, PF 2% INJ 5 ML
  21. ATIVAN [Concomitant]
     Active Substance: LORAZEPAM
     Indication: Product used for unknown indication
     Dosage: 1 MG, QD, PRN
     Route: 048
  22. BACTROBAN [Concomitant]
     Active Substance: BACTROBAN
     Indication: Product used for unknown indication
     Dosage: UNK, 2% TOPICAL OINTMENT: 1 APP, TOPICAL, TID
  23. PROCHLORPERAZINE [Concomitant]
     Active Substance: PROCHLORPERAZINE
     Indication: Product used for unknown indication
     Dosage: UNK,10 MG=2 ML, IV PUSH, Q6H-INT, PRN
  24. ONDANSETRON [Concomitant]
     Active Substance: ONDANSETRON
     Indication: Product used for unknown indication
     Dosage: 8 MG, QID
     Dates: start: 20220604

REACTIONS (44)
  - Stevens-Johnson syndrome [Recovered/Resolved]
  - Toxic epidermal necrolysis [Recovered/Resolved]
  - Hypersensitivity [Unknown]
  - Amniotic membrane graft [Unknown]
  - Glaucoma [Unknown]
  - Symblepharon [Unknown]
  - Major depression [Unknown]
  - Endometriosis [Unknown]
  - Deafness [Not Recovered/Not Resolved]
  - Abdominal pain [Unknown]
  - Generalised anxiety disorder [Unknown]
  - Asthma [Unknown]
  - Leukocytosis [Unknown]
  - Haematuria [Unknown]
  - Obesity [Unknown]
  - Learning disorder [Unknown]
  - Reading disorder [Unknown]
  - Carpal tunnel syndrome [Unknown]
  - Skin lesion [Recovering/Resolving]
  - Throat irritation [Recovered/Resolved]
  - Myalgia [Unknown]
  - Rash erythematous [Unknown]
  - Chills [Unknown]
  - Vomiting [Unknown]
  - Tachycardia [Unknown]
  - Swelling face [Unknown]
  - Bacterial vaginosis [Unknown]
  - Polymenorrhoea [Unknown]
  - Mouth ulceration [Unknown]
  - Rash maculo-papular [Unknown]
  - Ovarian cyst [Unknown]
  - Eye disorder [Unknown]
  - Skin exfoliation [Unknown]
  - Adverse drug reaction [Unknown]
  - Conjunctival disorder [Unknown]
  - Conjunctival haemorrhage [Unknown]
  - Chlamydial infection [Unknown]
  - Vaginal infection [Unknown]
  - Hepatic steatosis [Unknown]
  - Body mass index increased [Unknown]
  - Exposure to SARS-CoV-2 [Unknown]
  - Odynophagia [Unknown]
  - Trichiasis [Recovered/Resolved]
  - Eye haemorrhage [Unknown]

NARRATIVE: CASE EVENT DATE: 20220531
